FAERS Safety Report 14131445 (Version 1)
Quarter: 2017Q4

REPORT INFORMATION
  Report Type: Other
  Country: HR (occurrence: HR)
  Receive Date: 20171026
  Receipt Date: 20171026
  Transmission Date: 20180321
  Serious: Yes (Other)
  Sender: FDA-Public Use
  Company Number: HR-HIKMA PHARMACEUTICALS CO. LTD-2017HR010967

PATIENT

DRUGS (4)
  1. SALAZOPYRIN [Concomitant]
     Active Substance: SULFASALAZINE
     Indication: ANKYLOSING SPONDYLITIS
     Dosage: 1000 MG, 2X/DAY
     Route: 048
  2. MEDROL [Concomitant]
     Active Substance: METHYLPREDNISOLONE
     Indication: RHEUMATOID ARTHRITIS
     Dosage: 8 MG, 1X/DAY
     Route: 048
  3. MEDROL [Concomitant]
     Active Substance: METHYLPREDNISOLONE
     Indication: ANKYLOSING SPONDYLITIS
  4. INFLECTRA [Suspect]
     Active Substance: INFLIXIMAB-DYYB
     Indication: ANKYLOSING SPONDYLITIS
     Dosage: 300 MG, CYCLIC
     Route: 042
     Dates: start: 201412, end: 201605

REACTIONS (4)
  - Drug level decreased [Recovering/Resolving]
  - Drug specific antibody [Recovering/Resolving]
  - Ankylosing spondylitis [Recovering/Resolving]
  - Drug ineffective [Recovering/Resolving]

NARRATIVE: CASE EVENT DATE: 201605
